FAERS Safety Report 16573258 (Version 5)
Quarter: 2019Q3

REPORT INFORMATION
  Report Type: Report from Study
  Country: IE (occurrence: IE)
  Receive Date: 20190715
  Receipt Date: 20190923
  Transmission Date: 20191004
  Serious: Yes (Hospitalization, Other)
  Sender: FDA-Public Use
  Company Number: IE-MYLANLABS-2019M1065004

PATIENT
  Age: 35 Year
  Sex: Male
  Weight: 95 kg

DRUGS (9)
  1. TETRALYSAL                         /00001701/ [Concomitant]
     Active Substance: LYMECYCLINE
     Indication: ACNE
     Dosage: 300 MILLIGRAM, QD
     Route: 048
     Dates: start: 2006
  2. ZYPREXA [Concomitant]
     Active Substance: OLANZAPINE
     Indication: DEPRESSION
     Dosage: UNK UNK, QD
     Route: 048
     Dates: start: 2006
  3. AZATHIOPRINE. [Suspect]
     Active Substance: AZATHIOPRINE
     Indication: COLITIS ULCERATIVE
     Dosage: 100 MILLIGRAM, QD
     Route: 048
     Dates: start: 20080429, end: 20181226
  4. HUMIRA [Suspect]
     Active Substance: ADALIMUMAB
     Dosage: 40 MILLIGRAM, Q2W
     Route: 058
     Dates: start: 20140718, end: 201606
  5. LEXAPRO [Concomitant]
     Active Substance: ESCITALOPRAM OXALATE
     Indication: DEPRESSION
     Dosage: 20 MILLIGRAM/KILOGRAM, QD
     Route: 048
     Dates: start: 2006
  6. HUMIRA [Suspect]
     Active Substance: ADALIMUMAB
     Dosage: 40 MILLIGRAM, Q2W
     Route: 058
     Dates: start: 20121102, end: 201606
  7. HUMIRA [Suspect]
     Active Substance: ADALIMUMAB
     Indication: COLITIS ULCERATIVE
     Dosage: UNK UNK, Q2W
     Route: 058
     Dates: start: 201211, end: 201211
  8. HUMIRA [Suspect]
     Active Substance: ADALIMUMAB
     Dosage: 40 MILLIGRAM, QW
     Route: 058
     Dates: start: 201606, end: 20181226
  9. PENTASA [Concomitant]
     Active Substance: MESALAMINE
     Indication: COLITIS ULCERATIVE
     Dosage: 4500 DOSAGE FORM, QD
     Route: 048
     Dates: start: 20071127

REACTIONS (2)
  - Swelling face [Not Recovered/Not Resolved]
  - Cellulitis orbital [Not Recovered/Not Resolved]

NARRATIVE: CASE EVENT DATE: 20181226
